FAERS Safety Report 10233041 (Version 3)
Quarter: 2016Q2

REPORT INFORMATION
  Report Type: Spontaneous
  Country: US (occurrence: US)
  Receive Date: 20140612
  Receipt Date: 20160607
  Transmission Date: 20160815
  Serious: No
  Sender: FDA-Public Use
  Company Number: US-PFIZER INC-2014156040

PATIENT
  Age: 69 Year
  Sex: Female

DRUGS (26)
  1. OMEPRAZOLE. [Concomitant]
     Active Substance: OMEPRAZOLE
     Dosage: 40 MG, 2X/DAY (1 CAPSULE ORALLY TWICE DAILY, 30 MIN BEFORE MEAL)
     Route: 048
  2. VESICARE [Concomitant]
     Active Substance: SOLIFENACIN SUCCINATE
     Dosage: 5 MG, 1X/DAY
     Route: 048
  3. PERCOCET [Concomitant]
     Active Substance: ACETAMINOPHEN\OXYCODONE HYDROCHLORIDE
     Dosage: OXYCODONE HYDROCHLORIDE 10MG, PARACETAMOL 325MG
     Route: 048
  4. LYRICA [Suspect]
     Active Substance: PREGABALIN
     Dosage: 1 DF, UNK
     Route: 048
  5. MIRTAZAPINE. [Concomitant]
     Active Substance: MIRTAZAPINE
     Dosage: 15 MG, DAILY (1 TABLET BEFORE BEDTIME IN THE EVENING ORALLY DAILY)
     Route: 048
  6. ESCITALOPRAM OXALATE. [Concomitant]
     Active Substance: ESCITALOPRAM OXALATE
     Dosage: 10 MG, 1X/DAY (1 TABLET ORALLY ONCE A DAY)
     Route: 048
  7. CYANOCOBALAMIN. [Concomitant]
     Active Substance: CYANOCOBALAMIN
     Dosage: 1 ML, MONTHLY
     Route: 030
  8. LISINOPRIL. [Concomitant]
     Active Substance: LISINOPRIL
     Dosage: 20 MG, DAILY
     Route: 048
  9. DICYCLOMINE HCL [Concomitant]
     Active Substance: DICYCLOMINE HYDROCHLORIDE
     Dosage: 10 MG, 3X/DAY
     Route: 048
  10. BACTRIM DS [Concomitant]
     Active Substance: SULFAMETHOXAZOLE\TRIMETHOPRIM
     Dosage: SULFAMETHOXAZOLE 800MG, TRIMETHOPRIM 160MG
     Route: 048
  11. LIDOCAINE. [Concomitant]
     Active Substance: LIDOCAINE
     Dosage: 5% EXTERNAL PATCH, 1 PATCH(S) DAILY
  12. VITAMIN B12 [Concomitant]
     Active Substance: CYANOCOBALAMIN
     Dosage: 1000 MCG/15ML ORALLY ONCE A DAY
     Route: 048
  13. SPIRIVA [Concomitant]
     Active Substance: TIOTROPIUM BROMIDE MONOHYDRATE
     Dosage: 18 ?G, DAILY
     Route: 045
  14. BACLOFEN. [Concomitant]
     Active Substance: BACLOFEN
     Indication: MUSCLE SPASMS
     Dosage: 20 MG, 1X/DAY (20 MG 1 TABLET ORALLY AT BEDTIME)
     Route: 048
  15. LIPITOR [Concomitant]
     Active Substance: ATORVASTATIN CALCIUM
     Dosage: 10 MG, 1X/DAY (1 TABLET ORALLY AT BEDTIME)
     Route: 048
  16. CIPROFLOXACIN HCL [Concomitant]
     Active Substance: CIPROFLOXACIN HYDROCHLORIDE
     Dosage: 500 MG, 2X/DAY
     Route: 048
  17. SYMBICORT I [Concomitant]
     Dosage: 160-4.5 MCG/ACT2 PUFFS INHALATION TWICE DAILY
     Route: 045
  18. LOPERAMIDE A-D [Concomitant]
     Dosage: 2 MG, 2X/DAY (2 MG TWICE DAILY AS NEEDED)
     Route: 048
  19. ATORVASTATIN CALCIUM. [Concomitant]
     Active Substance: ATORVASTATIN CALCIUM
     Dosage: 10 MG, DAILY
     Route: 048
  20. LYRICA [Suspect]
     Active Substance: PREGABALIN
     Dosage: 75 MG, 2X/DAY
     Route: 048
  21. REQUIP [Concomitant]
     Active Substance: ROPINIROLE HYDROCHLORIDE
     Indication: RESTLESS LEGS SYNDROME
     Dosage: 0.25 MG, 1X/DAY (1 TABLET ORALLY TWO HRS BEFORE BEDTIME)
     Route: 048
  22. ATENOLOL. [Concomitant]
     Active Substance: ATENOLOL
     Dosage: 50 MG, DAILY
     Route: 048
  23. ROPINIROLE HYDROCHLORIDE. [Concomitant]
     Active Substance: ROPINIROLE HYDROCHLORIDE
     Dosage: 0.25 MG, 1X/DAY (1 TO 3 HRS BEFORE BEDTIME ORALLY ONCE A DAY)
     Route: 048
  24. ASPIRIN (E.C.) [Concomitant]
     Active Substance: ASPIRIN
     Dosage: 81 MG, DAILY (1 TABLET ORALLY DAILY)
     Route: 048
  25. ACETAMINOPHEN\HYDROCODONE BITARTRATE [Concomitant]
     Active Substance: ACETAMINOPHEN\HYDROCODONE BITARTRATE
     Indication: PAIN
     Dosage: 10-325MG 1 TABLET ORALLY EVERY 4-6 HOURS AS NEEDED
     Route: 048
  26. PREVALITE [Concomitant]
     Active Substance: CHOLESTYRAMINE
     Dosage: 4GM/DOSE
     Route: 048

REACTIONS (3)
  - Off label use [Unknown]
  - Drug hypersensitivity [Unknown]
  - Formication [Unknown]
